FAERS Safety Report 6665259-9 (Version None)
Quarter: 2010Q2

REPORT INFORMATION
  Report Type: 
  Country: None (occurrence: None)
  Receive Date: 20100402
  Receipt Date: 20100319
  Transmission Date: 20101027
  Serious: Yes (Other)
  Sender: FDA-Public Use
  Company Number: US-ELI_LILLY_AND_COMPANY-US201003007743

PATIENT
  Sex: Male
  Weight: 86.168 kg

DRUGS (3)
  1. CIALIS [Suspect]
     Dosage: 30 MG, UNKNOWN
     Dates: start: 20091201
  2. CIALIS [Suspect]
     Dosage: UNK, AS NEEDED
  3. CIALIS [Suspect]
     Dosage: 20 MG, AS NEEDED
     Dates: start: 20100312

REACTIONS (4)
  - MALAISE [None]
  - SYNCOPE [None]
  - VISION BLURRED [None]
  - WEIGHT DECREASED [None]
